FAERS Safety Report 22393705 (Version 2)
Quarter: 2023Q2

REPORT INFORMATION
  Report Type: Spontaneous
  Country: US (occurrence: US)
  Receive Date: 20230601
  Receipt Date: 20230610
  Transmission Date: 20230721
  Serious: Yes (Disabling, Other)
  Sender: FDA-Public Use
  Company Number: US-REGENERON PHARMACEUTICALS, INC.-2023-070343

PATIENT
  Age: 86 Year
  Sex: Male

DRUGS (1)
  1. EYLEA [Suspect]
     Active Substance: AFLIBERCEPT
     Indication: Product used for unknown indication
     Dosage: UNK; FORMULATION: PFS UNKNOWN GERRESHEIMER
     Route: 065

REACTIONS (3)
  - Blindness unilateral [Unknown]
  - Endophthalmitis [Unknown]
  - Retinal detachment [Unknown]

NARRATIVE: CASE EVENT DATE: 20230101
